FAERS Safety Report 12214149 (Version 1)
Quarter: 2016Q1

REPORT INFORMATION
  Report Type: Spontaneous
  Country: US (occurrence: US)
  Receive Date: 20160328
  Receipt Date: 20160328
  Transmission Date: 20160526
  Serious: No
  Sender: FDA-Public Use
  Company Number: US-BAUSCH-BL-2015-029342

PATIENT

DRUGS (2)
  1. ZIANA [Suspect]
     Active Substance: CLINDAMYCIN PHOSPHATE\TRETINOIN
     Indication: DRY SKIN
     Route: 065
  2. TRETINOIN CREAM 0.025% [Suspect]
     Active Substance: TRETINOIN
     Indication: PRODUCT USED FOR UNKNOWN INDICATION
     Route: 065

REACTIONS (1)
  - Acne [Unknown]
